FAERS Safety Report 4266991-7 (Version None)
Quarter: 2004Q1

REPORT INFORMATION
  Report Type: 
  Country: None (occurrence: None)
  Receive Date: 20040107
  Receipt Date: 20031219
  Transmission Date: 20041129
  Serious: Yes (Death)
  Sender: FDA-Public Use
  Company Number: M2003.6626

PATIENT
  Age: 46 Year
  Sex: Female

DRUGS (3)
  1. RIFAMPICIN [Suspect]
     Indication: MENINGITIS TUBERCULOUS
  2. ETHAMBUTOL HCL [Concomitant]
  3. STREPTOMYCIN [Concomitant]

REACTIONS (3)
  - CHOLESTASIS [None]
  - HEPATIC FUNCTION ABNORMAL [None]
  - HYDROCEPHALUS [None]
